FAERS Safety Report 8952492 (Version 2)
Quarter: 2013Q4

REPORT INFORMATION
  Report Type: Spontaneous
  Country: US (occurrence: US)
  Receive Date: 20121205
  Receipt Date: 20131226
  Transmission Date: 20140711
  Serious: Yes (Hospitalization, Disabling)
  Sender: FDA-Public Use
  Company Number: US-BAYER-2012-124564

PATIENT
  Age: 19 Year
  Sex: Female
  Weight: 57 kg

DRUGS (23)
  1. YAZ [Suspect]
     Indication: ACNE
     Dosage: UNK
     Dates: start: 2010
  2. GIANVI [Suspect]
     Dosage: UNK
     Dates: start: 2010
  3. OCELLA [Suspect]
     Route: 048
  4. YASMIN [Suspect]
     Route: 048
  5. CENTRUM [Concomitant]
  6. AMOXICILLIN [Concomitant]
  7. TYLENOL [Concomitant]
     Indication: NASOPHARYNGITIS
  8. CEPHALEXIN [Concomitant]
  9. AZITHROMYCIN [Concomitant]
  10. PREDNISONE [Concomitant]
  11. UNASYN [Concomitant]
  12. FLAGYL [Concomitant]
  13. VANCOMYCIN [Concomitant]
  14. ERTAPENEM [Concomitant]
  15. DILAUDID [Concomitant]
  16. VALIUM [Concomitant]
  17. DOCUSATE [Concomitant]
  18. FAMOTIDINE [Concomitant]
  19. POLYETHYLENE GLYCOL [Concomitant]
  20. DIAZEPAM [Concomitant]
  21. OXYCODONE [Concomitant]
  22. ACETAMINOPHEN [Concomitant]
  23. IBUPROFEN [Concomitant]

REACTIONS (7)
  - Thrombosis [None]
  - Jugular vein thrombosis [None]
  - Injury [None]
  - Deformity [None]
  - Anxiety [None]
  - Anhedonia [None]
  - Life expectancy shortened [None]
